FAERS Safety Report 15563357 (Version 1)
Quarter: 2018Q4

REPORT INFORMATION
  Report Type: Report from Study
  Country: CO (occurrence: CO)
  Receive Date: 20181029
  Receipt Date: 20181029
  Transmission Date: 20190205
  Serious: Yes (Hospitalization)
  Sender: FDA-Public Use
  Company Number: PHHY2017CO091556

PATIENT
  Age: 48 Year
  Sex: Female
  Weight: 75 kg

DRUGS (2)
  1. SANDOSTATIN LAR DEPOT [Suspect]
     Active Substance: OCTREOTIDE ACETATE
     Indication: ACROMEGALY
     Dosage: 30 MG, QMO
     Route: 030
     Dates: start: 20161020
  2. SANDOSTATIN LAR DEPOT [Suspect]
     Active Substance: OCTREOTIDE ACETATE
     Dosage: 30 MG, QMO
     Route: 030
     Dates: start: 201611, end: 201805

REACTIONS (11)
  - Vomiting [Unknown]
  - Toxicity to various agents [Unknown]
  - Malaise [Unknown]
  - Hepatic steatosis [Unknown]
  - Abdominal pain upper [Unknown]
  - Gallbladder neoplasm [Unknown]
  - Hepatomegaly [Unknown]
  - Abdominal pain [Unknown]
  - Drug intolerance [Unknown]
  - Cholelithiasis [Unknown]
  - Nausea [Unknown]

NARRATIVE: CASE EVENT DATE: 20170201
